FAERS Safety Report 5367369-5 (Version None)
Quarter: 2007Q2

REPORT INFORMATION
  Report Type: 
  Country: None (occurrence: None)
  Receive Date: 20070622
  Receipt Date: 20060620
  Transmission Date: 20071010
  Serious: No
  Sender: FDA-Public Use
  Company Number: US-ASTRAZENECA-2006UW13096

PATIENT
  Age: 91 Year
  Sex: Male
  Weight: 65.3 kg

DRUGS (3)
  1. PULMICORT RESPULES [Suspect]
     Indication: ASTHMA
     Route: 055
     Dates: start: 20060401
  2. PULMICORT RESPULES [Suspect]
     Route: 055
     Dates: start: 20060401
  3. ASPIRIN [Concomitant]
     Dosage: BABY ASA

REACTIONS (1)
  - SHOCK [None]
